FAERS Safety Report 18973467 (Version 1)
Quarter: 2021Q1

REPORT INFORMATION
  Report Type: Report from Study
  Country: US (occurrence: US)
  Receive Date: 20210305
  Receipt Date: 20210305
  Transmission Date: 20210420
  Serious: Yes (Other)
  Sender: FDA-Public Use
  Company Number: US-JAZZ-2020-US-009316

PATIENT
  Sex: Female

DRUGS (37)
  1. XYREM [Suspect]
     Active Substance: SODIUM OXYBATE
     Indication: CATAPLEXY
     Dosage: 2.25 GRAM, BID
     Route: 048
     Dates: start: 201701, end: 201702
  2. BACLOFEN. [Concomitant]
     Active Substance: BACLOFEN
  3. CANDESARTAN CILEXETIL. [Concomitant]
     Active Substance: CANDESARTAN CILEXETIL
  4. CYANOCOBALAMIN. [Concomitant]
     Active Substance: CYANOCOBALAMIN
  5. OXYCODONE AND ACETAMINOPHEN [Concomitant]
     Active Substance: ACETAMINOPHEN\OXYCODONE HYDROCHLORIDE
  6. PERFOROMIST [Concomitant]
     Active Substance: FORMOTEROL FUMARATE DIHYDRATE
  7. PULMICORT TURBUHALER [Concomitant]
     Active Substance: BUDESONIDE
  8. VENLAFAXINE HCL [Concomitant]
     Active Substance: VENLAFAXINE HYDROCHLORIDE
  9. AJOVY [Concomitant]
     Active Substance: FREMANEZUMAB-VFRM
  10. AZELASTINE. [Concomitant]
     Active Substance: AZELASTINE HYDROCHLORIDE
  11. FLONASE ALLERGY RELIEF [Concomitant]
     Active Substance: FLUTICASONE PROPIONATE
  12. GABAPENTIN. [Concomitant]
     Active Substance: GABAPENTIN
  13. PROAIR HFA [Concomitant]
     Active Substance: ALBUTEROL SULFATE
  14. XANAX [Concomitant]
     Active Substance: ALPRAZOLAM
  15. XYREM [Suspect]
     Active Substance: SODIUM OXYBATE
     Indication: NARCOLEPSY
     Dosage: 2.25 GRAM, BID
     Route: 048
     Dates: start: 200510, end: 200511
  16. BUTALBITAL/ASA/CAFFEINE [Concomitant]
     Active Substance: ASPIRIN\BUTALBITAL\CAFFEINE
  17. XYREM [Suspect]
     Active Substance: SODIUM OXYBATE
     Dosage: 3 GRAM, SECOND DOSE
     Route: 048
     Dates: start: 201909
  18. BUSPIRONE HCL [Concomitant]
     Active Substance: BUSPIRONE HYDROCHLORIDE
  19. DIAZEPAM. [Concomitant]
     Active Substance: DIAZEPAM
  20. EPIPEN [Concomitant]
     Active Substance: EPINEPHRINE
  21. TIZANIDINE HCL [Concomitant]
     Active Substance: TIZANIDINE HYDROCHLORIDE
  22. XTAMPZA ER [Concomitant]
     Active Substance: OXYCODONE
  23. HYDROCODONE/ACETAMINOPHEN [Concomitant]
     Active Substance: ACETAMINOPHEN\HYDROCODONE
  24. IPRATROPIUM/ALBUTEROL [Concomitant]
     Active Substance: ALBUTEROL\IPRATROPIUM
  25. LEVOTHYROXINE. [Concomitant]
     Active Substance: LEVOTHYROXINE
  26. SUMATRIPTAN SUCCINATE. [Concomitant]
     Active Substance: SUMATRIPTAN SUCCINATE
  27. CYCLOBENZAPRINE. [Concomitant]
     Active Substance: CYCLOBENZAPRINE
  28. AMBIEN [Concomitant]
     Active Substance: ZOLPIDEM TARTRATE
  29. KETOROLAC [Concomitant]
     Active Substance: KETOROLAC TROMETHAMINE
  30. ADDERALL [Concomitant]
     Active Substance: AMPHETAMINE ASPARTATE\AMPHETAMINE SULFATE\DEXTROAMPHETAMINE SACCHARATE\DEXTROAMPHETAMINE SULFATE
  31. ALPRAZOLAM. [Concomitant]
     Active Substance: ALPRAZOLAM
  32. COMBIVENT RESPIMAT [Concomitant]
     Active Substance: ALBUTEROL SULFATE\IPRATROPIUM BROMIDE
  33. TRAZODONE [Concomitant]
     Active Substance: TRAZODONE HYDROCHLORIDE
  34. XYREM [Suspect]
     Active Substance: SODIUM OXYBATE
     Dosage: DOSE ADJUSTMENT
     Route: 048
     Dates: start: 201702, end: 201909
  35. XYREM [Suspect]
     Active Substance: SODIUM OXYBATE
     Dosage: 6 GRAM, FIRST DOSE
     Route: 048
     Dates: start: 201909
  36. LEXAPRO [Concomitant]
     Active Substance: ESCITALOPRAM OXALATE
  37. ALBUTEROL SULFATE. [Concomitant]
     Active Substance: ALBUTEROL SULFATE

REACTIONS (2)
  - Brain operation [Unknown]
  - Migraine [Recovering/Resolving]
